FAERS Safety Report 8582148-3 (Version None)
Quarter: 2012Q2

REPORT INFORMATION
  Report Type: 
  Country: None (occurrence: None)
  Receive Date: 20120423
  Receipt Date: 20100804
  Transmission Date: 20120825
  Serious: Yes (Hospitalization)
  Sender: FDA-Public Use
  Company Number: PHHY2010US51382

PATIENT
  Age: 40 Year
  Sex: Female
  Weight: 57.6 kg

DRUGS (1)
  1. EXJADE [Suspect]
     Indication: SICKLE CELL ANAEMIA
     Dosage: 1250 MG, DAILY, ORAL
     Route: 048

REACTIONS (2)
  - MALAISE [None]
  - SICKLE CELL ANAEMIA WITH CRISIS [None]
